FAERS Safety Report 25098336 (Version 1)
Quarter: 2025Q1

REPORT INFORMATION
  Report Type: Spontaneous
  Country: US (occurrence: US)
  Receive Date: 20250320
  Receipt Date: 20250320
  Transmission Date: 20250409
  Serious: Yes (Other)
  Sender: TEVA
  Company Number: US-TEVA-VS-3306626

PATIENT
  Sex: Female

DRUGS (1)
  1. AJOVY [Suspect]
     Active Substance: FREMANEZUMAB-VFRM
     Indication: Product used for unknown indication
     Route: 065

REACTIONS (9)
  - Nephrolithiasis [Unknown]
  - Device malfunction [Unknown]
  - Dermatitis allergic [Recovered/Resolved]
  - Incorrect dose administered by device [Unknown]
  - Injection site pain [Unknown]
  - Muscle tightness [Unknown]
  - Accidental exposure to product [Unknown]
  - Burning sensation [Recovered/Resolved]
  - Typical aura without headache [Unknown]
